FAERS Safety Report 15753223 (Version 1)
Quarter: 2018Q4

REPORT INFORMATION
  Report Type: Spontaneous
  Country: BE (occurrence: BE)
  Receive Date: 20181222
  Receipt Date: 20181222
  Transmission Date: 20190205
  Serious: Yes (Other)
  Sender: FDA-Public Use
  Company Number: BE-AUROBINDO-AUR-APL-2018-061046

PATIENT
  Age: 55 Year
  Sex: Female

DRUGS (7)
  1. PARACETAMOL [Suspect]
     Active Substance: ACETAMINOPHEN
     Indication: PAIN
     Dosage: 1 GRAM, ONCE A DAY
     Route: 048
  2. ZESTRIL [Concomitant]
     Active Substance: LISINOPRIL
     Indication: HYPERTENSION
     Dosage: 10 MILLIGRAM, ONCE A DAY
     Route: 048
     Dates: start: 2015
  3. LIORESAL [Concomitant]
     Active Substance: BACLOFEN
     Indication: PAIN
     Dosage: 25 MILLIGRAM, ONCE A DAY
     Route: 048
  4. RIVOTRIL [Concomitant]
     Active Substance: CLONAZEPAM
     Indication: PAIN
     Dosage: UNK
     Route: 065
  5. SOLU-MEDROL [Suspect]
     Active Substance: METHYLPREDNISOLONE SODIUM SUCCINATE
     Indication: PRODUCT USED FOR UNKNOWN INDICATION
     Dosage: 125 MILLIGRAM
     Route: 042
     Dates: start: 20180831, end: 20180914
  6. GABAPENTINE [Concomitant]
     Active Substance: GABAPENTIN
     Indication: PAIN
     Dosage: 600 MILLIGRAM, ONCE A DAY
     Route: 048
     Dates: start: 2014
  7. OCREVUS [Suspect]
     Active Substance: OCRELIZUMAB
     Indication: MULTIPLE SCLEROSIS
     Dosage: 300 MILLIGRAM
     Route: 042
     Dates: start: 20180831, end: 20180914

REACTIONS (5)
  - Hepatic enzyme abnormal [Recovering/Resolving]
  - Neutropenia [Recovering/Resolving]
  - Transaminases increased [Not Recovered/Not Resolved]
  - Fatigue [Not Recovered/Not Resolved]
  - Hepatitis toxic [Unknown]

NARRATIVE: CASE EVENT DATE: 20180902
